FAERS Safety Report 16498702 (Version 1)
Quarter: 2019Q2

REPORT INFORMATION
  Report Type: Spontaneous
  Country: AU (occurrence: AU)
  Receive Date: 20190629
  Receipt Date: 20190629
  Transmission Date: 20190711
  Serious: Yes (Hospitalization, Other)
  Sender: FDA-Public Use
  Company Number: AU-AMGEN-AUSSP2019102319

PATIENT
  Age: 77 Year
  Sex: Male

DRUGS (9)
  1. XGEVA [Suspect]
     Active Substance: DENOSUMAB
     Indication: PROSTATE CANCER
     Dosage: UNK
     Route: 065
     Dates: start: 2016
  2. ZOLADEX [Concomitant]
     Active Substance: GOSERELIN ACETATE
     Dosage: UNK
  3. PREDNISONE. [Concomitant]
     Active Substance: PREDNISONE
  4. ENZALUTAMIDE [Concomitant]
     Active Substance: ENZALUTAMIDE
  5. COSUDEX [Concomitant]
     Active Substance: BICALUTAMIDE
  6. ZOLADEX [Concomitant]
     Active Substance: GOSERELIN ACETATE
     Dosage: UNK
     Dates: start: 200908
  7. CABAZITAXEL [Concomitant]
     Active Substance: CABAZITAXEL
  8. ANANDRON [Concomitant]
     Active Substance: NILUTAMIDE
     Dosage: UNK
  9. DOCETAXEL. [Concomitant]
     Active Substance: DOCETAXEL
     Dosage: UNK, Q3WK
     Dates: start: 201610

REACTIONS (5)
  - Emotional distress [Unknown]
  - Renal impairment [Unknown]
  - Metastases to bone [Unknown]
  - Disease progression [Unknown]
  - Spinal pain [Unknown]

NARRATIVE: CASE EVENT DATE: 201610
